FAERS Safety Report 17506819 (Version 1)
Quarter: 2020Q1

REPORT INFORMATION
  Report Type: Spontaneous
  Country: CA (occurrence: CA)
  Receive Date: 20200306
  Receipt Date: 20200306
  Transmission Date: 20200409
  Serious: Yes (Life-Threatening, Hospitalization, Other)
  Sender: FDA-Public Use
  Company Number: CA-TEVA-2020-CA-1194268

PATIENT
  Age: 60 Year
  Sex: Female
  Weight: 81 kg

DRUGS (2)
  1. SANDOZCARBAMAZEPINE CR [Concomitant]
  2. TEVA-CARBAMAZEPINE [Suspect]
     Active Substance: CARBAMAZEPINE
     Indication: TRIGEMINAL NEURALGIA
     Dosage: 400 MILLIGRAM DAILY;
     Route: 048

REACTIONS (6)
  - Pyrexia [Recovering/Resolving]
  - Heart rate increased [Recovering/Resolving]
  - Retching [Recovering/Resolving]
  - Thrombosis [Recovering/Resolving]
  - Decreased appetite [Recovering/Resolving]
  - Nausea [Recovering/Resolving]
